FAERS Safety Report 15185306 (Version 1)
Quarter: 2018Q3

REPORT INFORMATION
  Report Type: Spontaneous
  Country: US (occurrence: US)
  Receive Date: 20180625
  Receipt Date: 20180625
  Transmission Date: 20181010
  Serious: Yes (Hospitalization)
  Sender: FDA-Public Use
  Company Number: None

PATIENT
  Age: 72 Year
  Sex: Female
  Weight: 65.77 kg

DRUGS (5)
  1. MULTIPLE VITAMINS ONE?A?DAY [Concomitant]
  2. OXYBUTYNIN ER 10MG TABLET [Suspect]
     Active Substance: OXYBUTYNIN
     Indication: BLADDER DISORDER
     Dosage: ?          QUANTITY:1 DF DOSAGE FORM;?
     Route: 048
     Dates: start: 20180411, end: 20180525
  3. CALCIUM VITAMIN D?500 [Concomitant]
  4. OMEPRAZOLE. [Concomitant]
     Active Substance: OMEPRAZOLE
  5. VITAMIN B12 [Concomitant]
     Active Substance: CYANOCOBALAMIN

REACTIONS (6)
  - Vomiting [None]
  - Cough [None]
  - Dysphonia [None]
  - Dysphagia [None]
  - Rash [None]
  - Abdominal discomfort [None]
